FAERS Safety Report 9787264 (Version 3)
Quarter: 2014Q1

REPORT INFORMATION
  Report Type: Spontaneous
  Country: FR (occurrence: FR)
  Receive Date: 20131230
  Receipt Date: 20140213
  Transmission Date: 20141002
  Serious: Yes (Life-Threatening, Hospitalization)
  Sender: FDA-Public Use
  Company Number: FR-ROCHE-1326817

PATIENT
  Age: 68 Year
  Sex: Male

DRUGS (5)
  1. MABTHERA [Suspect]
     Indication: WALDENSTROM^S MACROGLOBULINAEMIA
     Route: 042
     Dates: start: 20131118, end: 20131120
  2. MABTHERA [Suspect]
     Route: 042
     Dates: start: 20131216, end: 20131216
  3. BENDAMUSTINE [Concomitant]
     Indication: WALDENSTROM^S MACROGLOBULINAEMIA
     Route: 042
     Dates: start: 20131118, end: 20131120
  4. BENDAMUSTINE [Concomitant]
     Route: 042
     Dates: start: 20131216, end: 20131216
  5. BENDAMUSTINE [Concomitant]
     Route: 042
     Dates: start: 20140120, end: 20140122

REACTIONS (6)
  - Hypovolaemic shock [Recovered/Resolved]
  - Prothrombin time ratio decreased [Recovered/Resolved]
  - Activated partial thromboplastin time prolonged [Recovered/Resolved]
  - Hypotension [Recovered/Resolved]
  - Serum sickness [Recovered/Resolved]
  - Thrombocytopenia [Recovered/Resolved]
